FAERS Safety Report 7064963-0 (Version None)
Quarter: 2010Q4

REPORT INFORMATION
  Report Type: 
  Country: None (occurrence: None)
  Receive Date: 20101027
  Receipt Date: 20101021
  Transmission Date: 20110411
  Serious: Yes (Other)
  Sender: FDA-Public Use
  Company Number: TR-BAXTER-2010BH026511

PATIENT

DRUGS (4)
  1. MESNA [Suspect]
     Indication: NON-HODGKIN'S LYMPHOMA
     Route: 065
  2. IFOSFAMIDE [Suspect]
     Indication: NON-HODGKIN'S LYMPHOMA
     Route: 065
  3. MITOXANTRONE GENERIC [Suspect]
     Indication: NON-HODGKIN'S LYMPHOMA
     Route: 065
  4. ETOPOSIDE [Suspect]
     Indication: NON-HODGKIN'S LYMPHOMA
     Route: 065

REACTIONS (1)
  - FEBRILE NEUTROPENIA [None]
